FAERS Safety Report 25203047 (Version 1)
Quarter: 2025Q2

REPORT INFORMATION
  Report Type: Spontaneous
  Country: IR (occurrence: IR)
  Receive Date: 20250416
  Receipt Date: 20250416
  Transmission Date: 20250716
  Serious: Yes (Other)
  Sender: RANBAXY
  Company Number: IR-SUN PHARMACEUTICAL INDUSTRIES LTD-2025RR-503478

PATIENT
  Age: 23 Year
  Sex: Female

DRUGS (2)
  1. LIRAGLUTIDE [Interacting]
     Active Substance: LIRAGLUTIDE
     Indication: Product used for unknown indication
     Dosage: 0.6 MILLIGRAM, DAILY
     Route: 058
  2. CLONAZEPAM [Interacting]
     Active Substance: CLONAZEPAM
     Indication: Aerophobia
     Route: 065

REACTIONS (3)
  - Drug interaction [Recovered/Resolved]
  - Panic attack [Recovered/Resolved]
  - Off label use [Unknown]
